FAERS Safety Report 23960261 (Version 1)
Quarter: 2024Q2

REPORT INFORMATION
  Report Type: Spontaneous
  Country: US (occurrence: US)
  Receive Date: 20240611
  Receipt Date: 20240611
  Transmission Date: 20240716
  Serious: Yes (Hospitalization)
  Sender: FDA-Public Use
  Company Number: US-CHEPLA-2024007167

PATIENT
  Sex: Female

DRUGS (3)
  1. HYDROXYUREA [Suspect]
     Active Substance: HYDROXYUREA
  2. OXBRYTA [Suspect]
     Active Substance: VOXELOTOR
     Dosage: DAILY DOSE: 3 DOSAGE FORM
     Dates: start: 20220906
  3. OXBRYTA [Suspect]
     Active Substance: VOXELOTOR
     Dosage: DAILY DOSE: 3 DOSAGE FORM
     Dates: start: 202210

REACTIONS (3)
  - Femur fracture [Unknown]
  - Gastrooesophageal reflux disease [Recovered/Resolved]
  - Arrhythmia [Unknown]

NARRATIVE: CASE EVENT DATE: 20231218
